FAERS Safety Report 7237265-7 (Version None)
Quarter: 2011Q1

REPORT INFORMATION
  Report Type: 
  Country: None (occurrence: None)
  Receive Date: 20110121
  Receipt Date: 20110107
  Transmission Date: 20110831
  Serious: Yes (Death)
  Sender: FDA-Public Use
  Company Number: US-CELGENEUS-163-21880-11010953

PATIENT
  Sex: Male

DRUGS (11)
  1. ALKERAN [Concomitant]
     Route: 065
  2. REVLIMID [Suspect]
     Route: 048
     Dates: start: 20100801
  3. DEXAMETHASONE [Concomitant]
     Route: 065
  4. FLONASE [Concomitant]
     Route: 065
  5. REVLIMID [Suspect]
     Indication: MULTIPLE MYELOMA
     Route: 048
     Dates: start: 20100401
  6. CENTRUM [Concomitant]
     Route: 065
  7. ASPIRIN [Concomitant]
     Route: 065
  8. MULTI-VITAMINS [Concomitant]
     Route: 065
  9. PROTONIX [Concomitant]
     Route: 065
  10. OXYCODONE [Concomitant]
     Route: 065
  11. NEUPOGEN [Concomitant]
     Route: 065

REACTIONS (1)
  - DEATH [None]
